FAERS Safety Report 13737757 (Version 1)
Quarter: 2017Q3

REPORT INFORMATION
  Report Type: Report from Study
  Country: US (occurrence: US)
  Receive Date: 20170710
  Receipt Date: 20170710
  Transmission Date: 20171127
  Serious: No
  Sender: FDA-Public Use
  Company Number: US-SAOL THERAPEUTICS-2016SAO00738

PATIENT
  Age: 56 Year
  Sex: Male

DRUGS (12)
  1. BACLOFEN. [Suspect]
     Active Substance: BACLOFEN
     Dosage: 552.9 ?G, \DAY
     Route: 037
     Dates: start: 20140616
  2. HYDROMORPHONE [Suspect]
     Active Substance: HYDROMORPHONE
     Dosage: 0.7345 MG, \DAY
     Route: 037
     Dates: start: 20160610, end: 20140616
  3. BACLOFEN. [Suspect]
     Active Substance: BACLOFEN
     Dosage: 320.4 ?G, \DAY
     Route: 037
     Dates: start: 20140616
  4. MORPHINE [Suspect]
     Active Substance: MORPHINE
     Dosage: 3.801 MG, \DAY
     Route: 037
     Dates: start: 20140616
  5. BUPIVACAINE. [Suspect]
     Active Substance: BUPIVACAINE
     Dosage: 4.407 MG, \DAY
     Route: 037
     Dates: start: 20160610, end: 20140616
  6. BUPIVACAINE. [Suspect]
     Active Substance: BUPIVACAINE
     Dosage: 8.779 MG, \DAY
     Route: 037
     Dates: start: 20160610, end: 20140616
  7. BUPIVACAINE. [Suspect]
     Active Substance: BUPIVACAINE
     Dosage: 10.368 MG, \DAY
     Route: 037
     Dates: start: 20140616
  8. BUPIVACAINE. [Suspect]
     Active Substance: BUPIVACAINE
     Dosage: 6.008 MG, \DAY
     Route: 037
     Dates: start: 20140616
  9. BACLOFEN. [Suspect]
     Active Substance: BACLOFEN
     Indication: PAIN
     Dosage: 468.2 ?G, \DAY
     Route: 037
     Dates: start: 20140610, end: 20140616
  10. BACLOFEN. [Suspect]
     Active Substance: BACLOFEN
     Indication: POST LAMINECTOMY SYNDROME
     Dosage: 235 ?G, \DAY
     Route: 037
     Dates: start: 20140610, end: 20140616
  11. MORPHINE [Suspect]
     Active Substance: MORPHINE
     Dosage: 2.203 MG, \DAY
     Route: 037
     Dates: start: 20140616
  12. HYDROMORPHONE [Suspect]
     Active Substance: HYDROMORPHONE
     Dosage: 1.463 MG, \DAY
     Route: 037
     Dates: start: 20160610, end: 20140616

REACTIONS (3)
  - Off label use [Unknown]
  - Somnolence [Recovered/Resolved]
  - Oedema [Recovered/Resolved]

NARRATIVE: CASE EVENT DATE: 20140616
